FAERS Safety Report 5984343-6 (Version None)
Quarter: 2008Q4

REPORT INFORMATION
  Report Type: 
  Country: None (occurrence: None)
  Receive Date: 20081208
  Receipt Date: 20081201
  Transmission Date: 20090506
  Serious: Yes (Other)
  Sender: FDA-Public Use
  Company Number: PHEH2008US10676

PATIENT
  Sex: Female

DRUGS (4)
  1. ZOMETA [Suspect]
     Indication: RESORPTION BONE INCREASED
     Dosage: UNK
     Dates: start: 20000101, end: 20060101
  2. ZOMETA [Suspect]
     Indication: OSTEOPOROSIS
  3. AREDIA [Suspect]
     Indication: RESORPTION BONE INCREASED
     Dosage: UNK
     Dates: start: 19990101, end: 20000101
  4. AREDIA [Suspect]
     Indication: OSTEOPOROSIS

REACTIONS (5)
  - ANXIETY [None]
  - MENTAL DISORDER [None]
  - MULTIPLE INJURIES [None]
  - OSTEONECROSIS [None]
  - PAIN [None]
